FAERS Safety Report 6308034-7 (Version None)
Quarter: 2009Q3

REPORT INFORMATION
  Report Type: 
  Country: None (occurrence: None)
  Receive Date: 20090813
  Receipt Date: 20090806
  Transmission Date: 20100115
  Serious: Yes (Hospitalization)
  Sender: FDA-Public Use
  Company Number: A0801733A

PATIENT
  Age: 5 Month
  Sex: Male

DRUGS (1)
  1. ZANTAC [Suspect]
     Dosage: 75MG SINGLE DOSE
     Route: 048
     Dates: start: 20090806, end: 20090806

REACTIONS (1)
  - ACCIDENTAL OVERDOSE [None]
